FAERS Safety Report 6248501-8 (Version None)
Quarter: 2009Q2

REPORT INFORMATION
  Report Type: 
  Country: None (occurrence: None)
  Receive Date: 20090629
  Receipt Date: 20090619
  Transmission Date: 20091009
  Serious: Yes (Hospitalization)
  Sender: FDA-Public Use
  Company Number: US-BRISTOL-MYERS SQUIBB COMPANY-14672760

PATIENT
  Age: 21 Year
  Sex: Female
  Weight: 65 kg

DRUGS (8)
  1. DASATINIB [Suspect]
     Indication: HEAD AND NECK CANCER
     Route: 048
     Dates: start: 20080430, end: 20080508
  2. CETUXIMAB [Suspect]
     Indication: HEAD AND NECK CANCER
     Dosage: INITIATED ON 1MAY08
     Route: 042
     Dates: start: 20080508, end: 20080508
  3. DILAUDID [Concomitant]
     Indication: PREMEDICATION
  4. REGLAN [Concomitant]
  5. IMITREX [Concomitant]
     Dates: start: 20080501
  6. COMPAZINE [Concomitant]
     Route: 048
  7. VICODIN [Concomitant]
  8. FLONASE [Concomitant]

REACTIONS (4)
  - DYSPHAGIA [None]
  - DYSPNOEA [None]
  - PAIN [None]
  - TUMOUR HAEMORRHAGE [None]
